FAERS Safety Report 9094876 (Version 1)
Quarter: 2013Q1

REPORT INFORMATION
  Report Type: Spontaneous
  Country: US (occurrence: None)
  Receive Date: 20130214
  Receipt Date: 20130214
  Transmission Date: 20140127
  Serious: Yes (Other)
  Sender: FDA-Public Use
  Company Number: None

PATIENT
  Age: 33 Year
  Sex: Female
  Weight: 58.97 kg

DRUGS (1)
  1. MUCINEX DM MAXIMUM STRENGTH [Suspect]
     Indication: SINUS CONGESTION
     Dosage: 2 PILLS  1  PO
     Route: 048
     Dates: start: 20130207, end: 20130207

REACTIONS (18)
  - Dizziness [None]
  - Vision blurred [None]
  - Nausea [None]
  - Feeling abnormal [None]
  - Speech disorder [None]
  - Abasia [None]
  - Insomnia [None]
  - Malaise [None]
  - Tinnitus [None]
  - Headache [None]
  - Confusional state [None]
  - Halo vision [None]
  - Euphoric mood [None]
  - Mydriasis [None]
  - Fatigue [None]
  - Asthenia [None]
  - Pruritus [None]
  - Nervous system disorder [None]
